FAERS Safety Report 4679861-7 (Version None)
Quarter: 2005Q2

REPORT INFORMATION
  Report Type: 
  Country: None (occurrence: None)
  Receive Date: 20050602
  Receipt Date: 20050330
  Transmission Date: 20051028
  Serious: No
  Sender: FDA-Public Use
  Company Number: US-GLAXOSMITHKLINE-A0551934A

PATIENT
  Age: 78 Year
  Sex: Female

DRUGS (5)
  1. AUGMENTIN [Suspect]
     Dosage: 2TAB TWICE PER DAY
     Route: 048
     Dates: start: 20050217, end: 20050226
  2. DIGOXIN [Concomitant]
  3. THYROID TAB [Concomitant]
  4. CRYSTALLINE VIT B12 INJ [Concomitant]
  5. HYZAAR [Concomitant]

REACTIONS (4)
  - ARTHRALGIA [None]
  - JOINT SWELLING [None]
  - OEDEMA PERIPHERAL [None]
  - PAIN IN EXTREMITY [None]
